FAERS Safety Report 16483343 (Version 1)
Quarter: 2019Q2

REPORT INFORMATION
  Report Type: Report from Study
  Country: AU (occurrence: AU)
  Receive Date: 20190627
  Receipt Date: 20190627
  Transmission Date: 20190711
  Serious: Yes (Other)
  Sender: FDA-Public Use
  Company Number: AU-REGENERON PHARMACEUTICALS, INC.-2019-37442

PATIENT

DRUGS (1)
  1. EYLEA [Suspect]
     Active Substance: AFLIBERCEPT
     Indication: DIABETIC RETINAL OEDEMA
     Dosage: (OU) BILATERAL, Q4WK
     Route: 031
     Dates: start: 201802

REACTIONS (2)
  - Headache [Not Recovered/Not Resolved]
  - Eye laser surgery [Unknown]

NARRATIVE: CASE EVENT DATE: 201903
